FAERS Safety Report 13913572 (Version 2)
Quarter: 2017Q3

REPORT INFORMATION
  Report Type: Report from Study
  Country: US (occurrence: US)
  Receive Date: 20170828
  Receipt Date: 20170925
  Transmission Date: 20171127
  Serious: Yes (Other)
  Sender: FDA-Public Use
  Company Number: US-GILEAD-2017-0289875

PATIENT
  Age: 57 Year
  Sex: Male

DRUGS (1)
  1. SOFOSBUVIR W/VELPATASVIR [Suspect]
     Active Substance: SOFOSBUVIR\VELPATASVIR
     Indication: HEPATITIS C
     Dosage: 1 DF, QD
     Route: 048
     Dates: start: 20170612, end: 20170904

REACTIONS (15)
  - Hunger [Unknown]
  - Anger [Not Recovered/Not Resolved]
  - Weight decreased [Unknown]
  - Confusional state [Not Recovered/Not Resolved]
  - Feeding disorder [Unknown]
  - Nervous system disorder [Not Recovered/Not Resolved]
  - Temporal arteritis [Not Recovered/Not Resolved]
  - Vasodilatation [Not Recovered/Not Resolved]
  - Muscle atrophy [Unknown]
  - Feeling abnormal [Unknown]
  - Aneurysm [Unknown]
  - Emotional disorder [Not Recovered/Not Resolved]
  - Pain in extremity [Not Recovered/Not Resolved]
  - Feeling hot [Not Recovered/Not Resolved]
  - Nausea [Unknown]
